FAERS Safety Report 17185997 (Version 1)
Quarter: 2019Q4

REPORT INFORMATION
  Report Type: Spontaneous
  Country: CN (occurrence: CN)
  Receive Date: 20191220
  Receipt Date: 20191220
  Transmission Date: 20200122
  Serious: Yes (Other)
  Sender: FDA-Public Use
  Company Number: CN-ASTRAZENECA-2019SF84012

PATIENT
  Age: 27615 Day
  Sex: Female
  Weight: 47 kg

DRUGS (2)
  1. TAGRISSO [Suspect]
     Active Substance: OSIMERTINIB
     Indication: LUNG NEOPLASM MALIGNANT
     Route: 048
     Dates: start: 20190116
  2. GEFITINIB. [Suspect]
     Active Substance: GEFITINIB
     Dosage: UNKNOWN
     Route: 048

REACTIONS (3)
  - Thrombocytopenia [Recovering/Resolving]
  - Drug resistance [Unknown]
  - EGFR gene mutation [Unknown]

NARRATIVE: CASE EVENT DATE: 20190902
